FAERS Safety Report 8785044 (Version 1)
Quarter: 2012Q4

REPORT INFORMATION
  Report Type: Spontaneous
  Country: FR (occurrence: None)
  Receive Date: 20120831
  Receipt Date: 20120831
  Transmission Date: 20130627
  Serious: Yes (Hospitalization)
  Sender: FDA-Public Use
  Company Number: ENTC2012-0392

PATIENT
  Age: 60 Year
  Sex: Male

DRUGS (15)
  1. STALEVO [Suspect]
     Indication: PARKINSON^S DISEASE
     Dosage: 4 Dosage form (1 Dosage form,4 in 1 d)
     Dates: start: 1998
  2. STALEVO [Suspect]
     Indication: PARKINSON^S DISEASE
     Dates: start: 20120406
  3. STALEVO [Suspect]
     Indication: PARKINSON^S DISEASE
     Dosage: 75 ma at 8 am. 12:00. 4 Pm and 8 Pm
     Dates: start: 20120611, end: 20120702
  4. MODOPAR [Suspect]
     Indication: PARKINSON^S DISEASE
     Dosage: 62.5 mg (62.5 mg,4 in 1 d}
     Dates: start: 1995
  5. MODOPAR [Suspect]
     Indication: PARKINSON^S DISEASE
     Dosage: 62.5 mg; 125 my at 7 am, 62.5 mg at 4 pm
     Dates: start: 20120611
  6. MODOPAR [Suspect]
     Indication: PARKINSON^S DISEASE
     Dosage: 62.5 mg; 125 mg at 8 am, 62.5 mg at 4 pm
     Dates: start: 20120702
  7. AZILECT [Suspect]
     Indication: PARKINSON^S DISEASE
     Dosage: 1 TABLET DAILY
     Dates: end: 20120406
  8. ARTANE [Suspect]
     Indication: PARKINSON^S DISEASE
     Dosage: ONCE DAILY
     Dates: end: 20120406
  9. ARTANE [Suspect]
     Indication: PARKINSON^S DISEASE
     Dosage: ONE TABLET
     Dates: start: 20120702
  10. ARTANE [Suspect]
     Indication: PARKINSON^S DISEASE
     Dosage: ONCE DAILY AT 12:00
     Dates: start: 20120727
  11. ORBENINE [Concomitant]
  12. PANTOPRAZOLE [Concomitant]
  13. SIFROL [Concomitant]
  14. MANTADIX [Concomitant]
  15. SIFROL LP [Concomitant]

REACTIONS (6)
  - Dyskinesia [None]
  - Agitation [None]
  - Agitation [None]
  - Binge eating [None]
  - Hypersexuality [None]
  - Psychomotor hyperactivity [None]
